FAERS Safety Report 10025653 (Version 2)
Quarter: 2014Q2

REPORT INFORMATION
  Report Type: Spontaneous
  Country: US (occurrence: None)
  Receive Date: 20140318
  Receipt Date: 20140402
  Transmission Date: 20141212
  Serious: Yes (Hospitalization, Other)
  Sender: FDA-Public Use
  Company Number: AUR-APL-2014-02756

PATIENT
  Age: 79 Year
  Sex: Female
  Weight: 80.29 kg

DRUGS (4)
  1. ALENDRONIC ACID [Suspect]
     Indication: OSTEOPENIA
     Route: 048
     Dates: start: 2009, end: 20140201
  2. FOSAMAX [Concomitant]
     Indication: PRODUCT USED FOR UNKNOWN INDICATION
  3. VITAMIN D [Concomitant]
  4. CALCIUM [Concomitant]

REACTIONS (15)
  - Choking [None]
  - Oropharyngeal pain [None]
  - Dysphagia [None]
  - Aphasia [None]
  - Groin pain [None]
  - Abasia [None]
  - Blood glucose increased [None]
  - Blood pressure increased [None]
  - Burning sensation [None]
  - Pain in extremity [None]
  - Muscular weakness [None]
  - Arthralgia [None]
  - Pain in extremity [None]
  - Syncope [None]
  - Foreign body [None]
